FAERS Safety Report 7606490-5 (Version None)
Quarter: 2011Q3

REPORT INFORMATION
  Report Type: 
  Country: None (occurrence: None)
  Receive Date: 20110713
  Receipt Date: 20090615
  Transmission Date: 20111222
  Serious: Yes (Death, Hospitalization, Other)
  Sender: FDA-Public Use
  Company Number: US-BAYER-200924151NA

PATIENT
  Age: 41 Year
  Sex: Male
  Weight: 97.506 kg

DRUGS (20)
  1. HEPARIN [Concomitant]
     Dosage: 81000 U
     Route: 042
     Dates: start: 20060530, end: 20060606
  2. LISINOPRIL [Concomitant]
     Dosage: 5 MG, QD
     Route: 048
     Dates: start: 20060324, end: 20060528
  3. AMIODARONE HCL [Concomitant]
     Dosage: 300 MG TOTAL
     Route: 042
     Dates: start: 20060530, end: 20060615
  4. TRASYLOL [Suspect]
     Indication: AORTIC ANEURYSM
  5. RED BLOOD CELLS [Concomitant]
     Dosage: 600 ML, ONCE
     Route: 042
     Dates: start: 20060530
  6. ACETYLSALICYLIC ACID SRT [Concomitant]
     Dosage: 325 MG, QD
     Route: 048
     Dates: end: 20060525
  7. VANCOMYCIN [Concomitant]
     Dosage: 1 GRAM
     Route: 042
     Dates: start: 20060530, end: 20060607
  8. FENTANYL-100 [Concomitant]
     Dosage: 2550 MG TOTAL
     Route: 042
     Dates: start: 20060530, end: 20060530
  9. TRASYLOL [Suspect]
     Indication: AORTIC VALVE REPLACEMENT
     Dosage: ANESTHESIA RECORD NOTED A TOTAL DOSAGE
     Dates: start: 20060530, end: 20060530
  10. COUMADIN [Concomitant]
     Dosage: UNK
     Route: 048
     Dates: end: 20060329
  11. ESMOLOL [Concomitant]
     Dosage: 20 MG TOTAL
     Route: 042
     Dates: start: 20060530, end: 20060530
  12. TRASYLOL [Suspect]
     Indication: MYOMECTOMY
     Dosage: 200 ML LAODING DOSE
     Route: 042
     Dates: start: 20060530, end: 20060530
  13. PLATELETS [Concomitant]
     Dosage: 150 ML, ONCE
     Route: 042
     Dates: start: 20060530
  14. CEFAZOLIN [Concomitant]
     Dosage: 1 GRAM
     Route: 042
     Dates: start: 20060530, end: 20060530
  15. MIDAZOLAM HCL [Concomitant]
     Dosage: 2 MG
     Route: 042
     Dates: start: 20060530, end: 20060530
  16. ETOMIDATE [Concomitant]
     Dosage: 20 MG
     Route: 042
     Dates: start: 20060530, end: 20060530
  17. PLASMA [Concomitant]
     Dosage: 500 ML, ONCE
     Route: 042
     Dates: start: 20060530
  18. CRYOPRECIPITATES [Concomitant]
     Dosage: 6 U, ONCE
     Route: 042
     Dates: start: 20060530
  19. MILRINONE [Concomitant]
     Dosage: 3 MG
     Route: 042
     Dates: start: 20060530, end: 20060606
  20. SUCCINYLCHOLINE CHLORIDE [Concomitant]
     Dosage: 200 MG
     Route: 042
     Dates: start: 20060530, end: 20060530

REACTIONS (10)
  - STRESS [None]
  - RENAL INJURY [None]
  - ANXIETY [None]
  - UNEVALUABLE EVENT [None]
  - DEATH [None]
  - EMOTIONAL DISTRESS [None]
  - PAIN [None]
  - FEAR [None]
  - RENAL FAILURE [None]
  - RENAL IMPAIRMENT [None]
